FAERS Safety Report 8529706-X (Version None)
Quarter: 2012Q3

REPORT INFORMATION
  Report Type: 
  Country: None (occurrence: None)
  Receive Date: 20120723
  Receipt Date: 20120718
  Transmission Date: 20120928
  Serious: Yes (Hospitalization, Other)
  Sender: FDA-Public Use
  Company Number: US-AMGEN-USASP2011051623

PATIENT
  Age: 29 Year
  Sex: Male
  Weight: 76.19 kg

DRUGS (1)
  1. NPLATE [Suspect]
     Indication: IDIOPATHIC THROMBOCYTOPENIC PURPURA
     Dosage: 385.5 MUG, QWK
     Route: 058
     Dates: start: 20110325, end: 20110621

REACTIONS (3)
  - PLATELET COUNT DECREASED [None]
  - BONE PAIN [None]
  - THERAPEUTIC RESPONSE DECREASED [None]
